FAERS Safety Report 6565250-7 (Version None)
Quarter: 2010Q1

REPORT INFORMATION
  Report Type: 
  Country: None (occurrence: None)
  Receive Date: 20100201
  Receipt Date: 20100127
  Transmission Date: 20100710
  Serious: Yes (Other)
  Sender: FDA-Public Use
  Company Number: US-ROCHE-677375

PATIENT
  Sex: Female
  Weight: 53.5 kg

DRUGS (1)
  1. CAPECITABINE [Suspect]
     Indication: BREAST CANCER
     Dosage: 2 TABS OF 500 MG, TWICE DAILY
     Route: 048
     Dates: start: 20091201, end: 20091223

REACTIONS (5)
  - BRADYCARDIA [None]
  - DIZZINESS [None]
  - HYPOTENSION [None]
  - PAIN IN EXTREMITY [None]
  - VENTRICULAR EXTRASYSTOLES [None]
